FAERS Safety Report 4279517-9 (Version None)
Quarter: 2004Q1

REPORT INFORMATION
  Report Type: 
  Country: None (occurrence: None)
  Receive Date: 20040126
  Receipt Date: 20040126
  Transmission Date: 20041129
  Serious: Yes (Hospitalization)
  Sender: FDA-Public Use
  Company Number: None

PATIENT
  Age: 59 Year
  Sex: Female
  Weight: 79.3795 kg

DRUGS (2)
  1. LEVAQUIN [Suspect]
     Indication: CYSTITIS
     Dosage: 1 PILL DAILY    ORAL
     Route: 048
     Dates: start: 20040119, end: 20040128
  2. LEVAQUIN [Suspect]
     Indication: LUNG INFECTION
     Dosage: 1 PILL DAILY    ORAL
     Route: 048
     Dates: start: 20040119, end: 20040128

REACTIONS (2)
  - DELUSION [None]
  - HALLUCINATION, AUDITORY [None]
